FAERS Safety Report 4708392-0 (Version None)
Quarter: 2005Q3

REPORT INFORMATION
  Report Type: 
  Country: None (occurrence: None)
  Receive Date: 20050707
  Receipt Date: 20050627
  Transmission Date: 20060218
  Serious: Yes (Life-Threatening)
  Sender: FDA-Public Use
  Company Number: JP-JNJFOC-20050700276

PATIENT
  Age: 24 Year
  Sex: Male

DRUGS (3)
  1. CRAVIT [Suspect]
     Route: 049
     Dates: start: 20050604, end: 20050604
  2. CERNILTON [Concomitant]
     Route: 049
  3. CERNILTON [Concomitant]
     Route: 049

REACTIONS (1)
  - SHOCK [None]
